FAERS Safety Report 24718094 (Version 1)
Quarter: 2024Q4

REPORT INFORMATION
  Report Type: Spontaneous
  Country: US (occurrence: US)
  Receive Date: 20241210
  Receipt Date: 20241210
  Transmission Date: 20250115
  Serious: Yes (Hospitalization)
  Sender: FRESENIUS MEDICAL CARE
  Company Number: US-FMCRTG-FMC-2412-001564

PATIENT
  Age: 86 Year
  Sex: Male
  Weight: 82 kg

DRUGS (3)
  1. DELFLEX WITH DEXTROSE 1.5% LOW MAGNESIUM LOW CALCIUM [Suspect]
     Active Substance: CALCIUM CHLORIDE\DEXTROSE\MAGNESIUM CHLORIDE\SODIUM CHLORIDE\SODIUM LACTATE
     Indication: End stage renal disease
     Dosage: CCPD ORDERS INCLUDED: 7 DAYS-A-WEEK, DEXTROSE = 1.5%, 2.5%, 4.25% DIALYSATE, CA = 2.5 MEQ/L, MG = 0.
     Route: 033
  2. DELFLEX WITH DEXTROSE 2.5% LOW MAGNESIUM LOW CALCIUM [Suspect]
     Active Substance: CALCIUM CHLORIDE\DEXTROSE\MAGNESIUM CHLORIDE\SODIUM CHLORIDE\SODIUM LACTATE
     Indication: End stage renal disease
     Dosage: CCPD ORDERS INCLUDED: 7 DAYS-A-WEEK, DEXTROSE = 1.5%, 2.5%, 4.25% DIALYSATE, CA = 2.5 MEQ/L, MG = 0.
     Route: 033
  3. DELFLEX WITH DEXTROSE 4.25% LOW MAGNESIUM LOW CALCIUM [Suspect]
     Active Substance: CALCIUM CHLORIDE\DEXTROSE\MAGNESIUM CHLORIDE\SODIUM CHLORIDE\SODIUM LACTATE
     Indication: End stage renal disease
     Dosage: CCPD ORDERS INCLUDED: 7 DAYS-A-WEEK, DEXTROSE = 1.5%, 2.5%, 4.25% DIALYSATE, CA = 2.5 MEQ/L, MG = 0.
     Route: 033

REACTIONS (2)
  - Pneumonia [Recovered/Resolved]
  - Hypervolaemia [Recovered/Resolved]

NARRATIVE: CASE EVENT DATE: 20241125
